FAERS Safety Report 17924032 (Version 2)
Quarter: 2020Q2

REPORT INFORMATION
  Report Type: Spontaneous
  Country: US (occurrence: US)
  Receive Date: 20200622
  Receipt Date: 20200627
  Transmission Date: 20200714
  Serious: Yes (Death)
  Sender: FDA-Public Use
  Company Number: US-ACCORD-186291

PATIENT
  Age: 36 Year
  Sex: Female

DRUGS (2)
  1. CLOZAPINE ACCORD [Suspect]
     Active Substance: CLOZAPINE
     Indication: SCHIZOAFFECTIVE DISORDER
     Dosage: EVERY MORNING
     Route: 048
     Dates: start: 2012
  2. CLOZAPINE ACCORD [Suspect]
     Active Substance: CLOZAPINE
     Indication: SCHIZOAFFECTIVE DISORDER
     Dosage: EVERY NIGHT
     Route: 048
     Dates: start: 2012

REACTIONS (1)
  - Myocardial infarction [Fatal]
